FAERS Safety Report 10129022 (Version 3)
Quarter: 2014Q3

REPORT INFORMATION
  Report Type: Report from Study
  Country: JP (occurrence: JP)
  Receive Date: 20140428
  Receipt Date: 20140730
  Transmission Date: 20150326
  Serious: Yes (Other)
  Sender: FDA-Public Use
  Company Number: PHHY2013JP028030

PATIENT
  Age: 36 Year
  Sex: Male
  Weight: 64 kg

DRUGS (18)
  1. CLOZARIL [Suspect]
     Active Substance: CLOZAPINE
     Dosage: 125 MG, DAILY
     Route: 048
     Dates: start: 20130218, end: 20130220
  2. CLOZARIL [Suspect]
     Active Substance: CLOZAPINE
     Dosage: 150 MG, DAILY
     Route: 048
     Dates: start: 20130315, end: 20130408
  3. CLOZARIL [Suspect]
     Active Substance: CLOZAPINE
     Dosage: 200 MG, DAILY
     Route: 048
     Dates: start: 20130413, end: 20130425
  4. CLOZARIL [Suspect]
     Active Substance: CLOZAPINE
     Dosage: 175 MG, DAILY
     Route: 048
     Dates: start: 20130224, end: 20130226
  5. CLOZARIL [Suspect]
     Active Substance: CLOZAPINE
     Dosage: 300 MG, DAILY
     Route: 048
     Dates: start: 20130308, end: 20130314
  6. CLOZARIL [Suspect]
     Active Substance: CLOZAPINE
     Dosage: 200 MG, DAILY
     Route: 048
     Dates: start: 20130227, end: 20130302
  7. CLOZARIL [Suspect]
     Active Substance: CLOZAPINE
     Dosage: 150 MG, DAILY
     Route: 048
     Dates: start: 20130221, end: 20130223
  8. MAGMITT [Concomitant]
     Active Substance: MAGNESIUM OXIDE
     Dosage: 990 MG, UNK
     Route: 048
  9. DEPAS [Concomitant]
     Active Substance: ETIZOLAM
     Indication: SCHIZOPHRENIA, PARANOID TYPE
     Dosage: 2 MG, UNK
     Route: 048
     Dates: end: 20130507
  10. ALESION [Concomitant]
     Active Substance: EPINASTINE HYDROCHLORIDE
     Dosage: 20 MG, UNK
     Route: 048
  11. CLOZARIL [Suspect]
     Active Substance: CLOZAPINE
     Indication: SCHIZOPHRENIA, PARANOID TYPE
     Dosage: 12.5 MG, DAILY
     Route: 048
     Dates: start: 20130207, end: 20130207
  12. CLOZARIL [Suspect]
     Active Substance: CLOZAPINE
     Dosage: 100 MG, DAILY
     Route: 048
     Dates: start: 20130216, end: 20130217
  13. CLOZARIL [Suspect]
     Active Substance: CLOZAPINE
     Dosage: 175 MG, DAILY
     Route: 048
     Dates: start: 20130409, end: 20130412
  14. CLOZARIL [Suspect]
     Active Substance: CLOZAPINE
     Dosage: 250 MG, UNK
     Route: 048
     Dates: start: 20130426
  15. CLOZARIL [Suspect]
     Active Substance: CLOZAPINE
     Dosage: 25 MG, DAILY
     Route: 048
     Dates: start: 20130208, end: 20130210
  16. CLOZARIL [Suspect]
     Active Substance: CLOZAPINE
     Dosage: 50 MG, DAILY
     Route: 048
     Dates: start: 20130211, end: 20130213
  17. CLOZARIL [Suspect]
     Active Substance: CLOZAPINE
     Dosage: 250 MG, DAILY
     Route: 048
     Dates: start: 20130303, end: 20130307
  18. CLOZARIL [Suspect]
     Active Substance: CLOZAPINE
     Dosage: 75 MG, DAILY
     Route: 048
     Dates: start: 20130214, end: 20130215

REACTIONS (5)
  - Liver disorder [Recovered/Resolved]
  - Lymphocyte count decreased [Unknown]
  - Neutrophil count increased [Unknown]
  - White blood cell count increased [Unknown]
  - Eosinophil count increased [Unknown]

NARRATIVE: CASE EVENT DATE: 20130221
